FAERS Safety Report 14365707 (Version 2)
Quarter: 2018Q1

REPORT INFORMATION
  Report Type: Report from Study
  Country: None (occurrence: CA)
  Receive Date: 20180109
  Receipt Date: 20180201
  Transmission Date: 20180509
  Serious: Yes (Hospitalization)
  Sender: FDA-Public Use
  Company Number: CA-ABBVIE-17K-028-2203305-00

PATIENT
  Age: 78 Year
  Sex: Female

DRUGS (1)
  1. HUMIRA [Suspect]
     Active Substance: ADALIMUMAB
     Indication: PSORIATIC ARTHROPATHY
     Route: 058
     Dates: start: 20160526

REACTIONS (5)
  - Eye contusion [Unknown]
  - Injury [Unknown]
  - Fall [Recovered/Resolved]
  - Transient aphasia [Unknown]
  - Contusion [Unknown]

NARRATIVE: CASE EVENT DATE: 20171220
